FAERS Safety Report 18869801 (Version 2)
Quarter: 2021Q1

REPORT INFORMATION
  Report Type: Spontaneous
  Country: US (occurrence: US)
  Receive Date: 20210209
  Receipt Date: 20210310
  Transmission Date: 20210420
  Serious: Yes (Death, Life-Threatening, Hospitalization, Other)
  Sender: FDA-Public Use
  Company Number: US-ELI_LILLY_AND_COMPANY-US202101012603

PATIENT
  Age: 76 Year
  Sex: Male
  Weight: 87.1 kg

DRUGS (4)
  1. BARICITINIB. [Suspect]
     Active Substance: BARICITINIB
     Indication: COVID-19
     Dosage: 4 MG, DAILY
     Route: 048
     Dates: start: 20210106, end: 20210119
  2. REMDESIVIR. [Concomitant]
     Active Substance: REMDESIVIR
     Indication: COVID-19
     Dosage: UNK, UNKNOWN
     Route: 065
     Dates: start: 20210106, end: 20210110
  3. DECADRON [Concomitant]
     Active Substance: DEXAMETHASONE
     Indication: PRODUCT USED FOR UNKNOWN INDICATION
     Dosage: UNK, UNKNOWN
     Dates: start: 20210106, end: 20210112
  4. METHYLPREDNISOLONE. [Concomitant]
     Active Substance: METHYLPREDNISOLONE
     Indication: PRODUCT USED FOR UNKNOWN INDICATION
     Dosage: UNK, UNKNOWN
     Dates: start: 20210112, end: 20210127

REACTIONS (9)
  - Haematoma [Unknown]
  - Blood loss anaemia [Unknown]
  - Cardiac arrest [Fatal]
  - Urinary tract infection pseudomonal [Unknown]
  - Urinary tract infection enterococcal [Unknown]
  - Pneumothorax spontaneous [Unknown]
  - Pneumonia staphylococcal [Unknown]
  - Hypoglycaemia [Unknown]
  - Respiratory distress [Unknown]

NARRATIVE: CASE EVENT DATE: 202101
